FAERS Safety Report 12047938 (Version 5)
Quarter: 2016Q4

REPORT INFORMATION
  Report Type: Spontaneous
  Country: JP (occurrence: JP)
  Receive Date: 20160208
  Receipt Date: 20161102
  Transmission Date: 20170206
  Serious: Yes (Hospitalization)
  Sender: FDA-Public Use
  Company Number: JP-TAKEDA-2016MPI000684

PATIENT
  Age: 84 Year
  Sex: Female
  Weight: 26.5 kg

DRUGS (73)
  1. MOHRUS [Concomitant]
     Active Substance: KETOPROFEN
     Indication: SPINAL COMPRESSION FRACTURE
     Dosage: 40 MG, UNK
     Route: 061
  2. TRAMAL [Concomitant]
     Active Substance: TRAMADOL
     Indication: SPINAL COMPRESSION FRACTURE
     Dosage: 25 MG, TID
     Route: 048
     Dates: start: 20150707, end: 20150707
  3. TRAMAL [Concomitant]
     Active Substance: TRAMADOL
     Dosage: 50 MG, TID
     Route: 048
     Dates: start: 20150708, end: 20150709
  4. DERMOVATE [Concomitant]
     Active Substance: CLOBETASOL
     Indication: ERYTHEMA MULTIFORME
     Dosage: UNK
     Route: 061
     Dates: start: 20150715, end: 20151009
  5. AMOXICILLIN HYDRATE [Concomitant]
     Active Substance: AMOXICILLIN
     Dosage: 250 MG, TID
     Route: 048
     Dates: start: 20160617, end: 20160626
  6. SOLULACT [Concomitant]
     Indication: LUNG INFECTION
     Dosage: 1500 ML, UNK
     Route: 042
     Dates: start: 20151114, end: 20151114
  7. PL [Concomitant]
     Active Substance: ACETAMINOPHEN\CAFFEINE\PROMETHAZINE\SALICYLAMIDE
     Indication: UPPER RESPIRATORY TRACT INFECTION
     Dosage: 1 G, TID
     Route: 048
     Dates: start: 20151106, end: 20151110
  8. ENSURE [Concomitant]
     Active Substance: AMINO ACIDS\DEXTROSE\ELECTROLYTES NOS\SOYBEAN OIL\VITAMINS
     Indication: DECREASED APPETITE
     Dosage: 250 ML, UNK
     Route: 048
     Dates: start: 20150727, end: 20151218
  9. ACETAMINOPHEN. [Concomitant]
     Active Substance: ACETAMINOPHEN
     Dosage: 325 MG, TID
     Route: 048
     Dates: start: 20150724, end: 20151113
  10. LIDOCAINE. [Concomitant]
     Active Substance: LIDOCAINE
     Dosage: 10 ML, UNK
     Route: 050
     Dates: start: 20151116, end: 20151116
  11. ALFAROL [Concomitant]
     Active Substance: ALFACALCIDOL
     Indication: OSTEOPOROSIS
     Dosage: UNK
     Route: 065
  12. CALONAL [Concomitant]
     Active Substance: ACETAMINOPHEN
     Indication: CATHETER SITE PAIN
     Dosage: 600 MG, QID
     Route: 048
     Dates: start: 20150629, end: 20150706
  13. CALONAL [Concomitant]
     Active Substance: ACETAMINOPHEN
     Dosage: 300 MG, TID
     Route: 048
     Dates: start: 20151117, end: 20151204
  14. GASMOTIN [Concomitant]
     Active Substance: MOSAPRIDE CITRATE
     Indication: CHRONIC GASTRITIS
     Dosage: 2.5 MG, QD
     Route: 048
     Dates: start: 20150706
  15. SENNOSIDE                          /00571901/ [Concomitant]
     Active Substance: SENNOSIDES A AND B
     Indication: PROPHYLAXIS
     Dosage: 24 UNK, UNK
     Route: 048
     Dates: start: 20150908, end: 20151206
  16. SULFAMETHOXAZOLE [Concomitant]
     Active Substance: SULFAMETHOXAZOLE
     Indication: PROPHYLAXIS
     Dosage: 400 MG, UNK
     Route: 048
     Dates: start: 20150701, end: 20160809
  17. TRAMAL [Concomitant]
     Active Substance: TRAMADOL
     Dosage: 25 MG, QID
     Route: 048
     Dates: start: 20150703, end: 20150706
  18. PERSANTIN [Concomitant]
     Active Substance: DIPYRIDAMOLE
     Indication: ISCHAEMIC HEART DISEASE PROPHYLAXIS
     Dosage: 25 MG, QD
     Route: 048
     Dates: start: 20150721, end: 20150726
  19. MAGMITT [Concomitant]
     Active Substance: MAGNESIUM OXIDE
     Dosage: 330 MG, UNK
     Route: 048
     Dates: start: 20150708, end: 20150810
  20. ZOLEDRONIC ACID [Concomitant]
     Active Substance: ZOLEDRONIC ACID
     Indication: BONE LESION
     Dosage: UNK
  21. AMOBAN [Concomitant]
     Active Substance: ZOPICLONE
     Indication: INSOMNIA
     Dosage: 5 MG, UNK
     Route: 048
     Dates: start: 20150713, end: 20151009
  22. BFLUID [Concomitant]
     Active Substance: AMINO ACIDS\DEXTROSE\ELECTROLYTES NOS\VITAMINS
     Indication: LUNG INFECTION
  23. CEFCAPENE PIVOXIL HYDROCHLORIDE [Concomitant]
     Active Substance: CEFCAPENE PIVOXIL HYDROCHLORIDE
     Indication: UPPER RESPIRATORY TRACT INFECTION
     Dosage: 100 MG, TID
     Route: 048
     Dates: start: 20151106, end: 20151110
  24. SODIUM CHLORIDE. [Concomitant]
     Active Substance: SODIUM CHLORIDE
     Indication: PROPHYLAXIS
     Dosage: 2 G, TID
     Route: 048
     Dates: start: 20150710, end: 20150710
  25. PRIMPERAN [Concomitant]
     Active Substance: METOCLOPRAMIDE HYDROCHLORIDE
     Indication: NAUSEA
     Dosage: 5 MG, UNK
     Route: 048
     Dates: start: 20150713, end: 20151128
  26. ZOSYN [Concomitant]
     Active Substance: PIPERACILLIN SODIUM\TAZOBACTAM SODIUM
     Indication: LUNG INFECTION
     Dosage: 2.25 MG, TID
     Route: 042
     Dates: start: 20151114, end: 20151116
  27. ZOSYN [Concomitant]
     Active Substance: PIPERACILLIN SODIUM\TAZOBACTAM SODIUM
     Indication: TUBERCULOUS PLEURISY
     Dosage: 4.5 G, QD
     Route: 042
     Dates: start: 20151117, end: 20151206
  28. BFLUID [Concomitant]
     Active Substance: AMINO ACIDS\DEXTROSE\ELECTROLYTES NOS\VITAMINS
     Indication: TUBERCULOUS PLEURISY
     Dosage: 500 ML, QD
     Route: 042
     Dates: start: 20151117, end: 20151206
  29. POTASSIUM CLAVULANATE [Concomitant]
     Active Substance: CLAVULANATE POTASSIUM
     Indication: PROPHYLAXIS
     Dosage: UNK
     Route: 065
  30. ACETAMINOPHEN. [Concomitant]
     Active Substance: ACETAMINOPHEN
     Dosage: 325 MG, QID
     Route: 048
     Dates: start: 20151114, end: 20151114
  31. LIDOCAINE. [Concomitant]
     Active Substance: LIDOCAINE
     Indication: THORACIC CAVITY DRAINAGE
     Dosage: 10 ML, UNK
     Route: 050
     Dates: start: 20151124, end: 20151203
  32. XYLOCAINE [Suspect]
     Active Substance: LIDOCAINE HYDROCHLORIDE
     Indication: BLADDER CATHETERISATION
     Dosage: 3 ML, UNK
     Route: 061
     Dates: start: 20151114, end: 20151114
  33. PREDNISOLONE. [Suspect]
     Active Substance: PREDNISOLONE
     Indication: PLASMA CELL MYELOMA
     Dosage: 60 MG, QD
     Route: 048
     Dates: start: 20150629, end: 20151102
  34. VELCADE [Suspect]
     Active Substance: BORTEZOMIB
     Indication: PLASMA CELL MYELOMA
     Dosage: 1.3 MG, 1/WEEK
     Route: 058
     Dates: start: 20150629, end: 20151102
  35. MELPHALAN [Suspect]
     Active Substance: MELPHALAN
     Indication: PLASMA CELL MYELOMA
     Dosage: 8 MG, QD
     Route: 048
     Dates: start: 20150629, end: 20151102
  36. TRAMAL [Concomitant]
     Active Substance: TRAMADOL
     Dosage: 25 MG, BID
     Route: 048
     Dates: start: 20151117, end: 20151204
  37. PROCHLORPERAZINE. [Concomitant]
     Active Substance: PROCHLORPERAZINE
     Indication: NAUSEA
     Dosage: UNK
     Route: 065
  38. MAGMITT [Concomitant]
     Active Substance: MAGNESIUM OXIDE
     Indication: CONSTIPATION
     Dosage: 330 MG, UNK
     Route: 048
     Dates: start: 20150810, end: 20151206
  39. SENNOSIDE                          /00571901/ [Concomitant]
     Active Substance: SENNOSIDES A AND B
     Indication: CONSTIPATION
     Dosage: 24 MG, UNK
     Route: 048
     Dates: start: 20150708, end: 20150810
  40. SODIUM CHLORIDE. [Concomitant]
     Active Substance: SODIUM CHLORIDE
     Indication: HYPONATRAEMIA
     Dosage: 1 G, UNK
     Route: 048
     Dates: start: 20160104
  41. SODIUM CHLORIDE. [Concomitant]
     Active Substance: SODIUM CHLORIDE
     Dosage: 1 G, TID
     Route: 048
     Dates: start: 20151106, end: 20151225
  42. SODIUM CHLORIDE. [Concomitant]
     Active Substance: SODIUM CHLORIDE
     Dosage: 1 G, TID
     Route: 048
     Dates: start: 20151031, end: 20151105
  43. AMOXICILLIN HYDRATE [Concomitant]
     Active Substance: AMOXICILLIN
     Indication: PROPHYLAXIS
     Dosage: 125 MG, TID
     Route: 048
     Dates: start: 20160617, end: 20160626
  44. XYLOCAINE [Concomitant]
     Active Substance: LIDOCAINE HYDROCHLORIDE
     Dosage: UNK
     Route: 065
  45. HEPARIN SODIUM. [Concomitant]
     Active Substance: HEPARIN SODIUM
     Dosage: UNK
     Route: 065
  46. SOLDEM [Concomitant]
     Active Substance: DEXTROSE\POTASSIUM CHLORIDE\SODIUM CHLORIDE\SODIUM LACTATE
     Indication: TUBERCULOUS PLEURISY
     Dosage: 500 ML, QD
     Route: 042
     Dates: start: 20151114, end: 20151117
  47. TRAMADOL HYDROCHLORIDE. [Concomitant]
     Active Substance: TRAMADOL HYDROCHLORIDE
     Indication: SPINAL COMPRESSION FRACTURE
     Dosage: 37.5 MG, QID
     Route: 048
     Dates: start: 20150709, end: 20150723
  48. BIOFERMIN R [Concomitant]
     Active Substance: BACILLUS SUBTILIS\LACTOBACILLUS ACIDOPHILUS\STREPTOCOCCUS FAECAIS
     Indication: DIARRHOEA
     Dosage: UNK
     Route: 048
     Dates: start: 20151120
  49. BENET [Concomitant]
     Active Substance: RISEDRONATE SODIUM
     Indication: OSTEOPOROSIS
     Route: 065
  50. CALONAL [Concomitant]
     Active Substance: ACETAMINOPHEN
     Indication: SPINAL COMPRESSION FRACTURE
     Dosage: 600 MG, UNK
     Route: 048
     Dates: start: 20150603, end: 20150628
  51. AUGMENTIN [Concomitant]
     Active Substance: AMOXICILLIN\CLAVULANATE POTASSIUM
     Dosage: UNK
     Route: 065
  52. PERSANTIN [Concomitant]
     Active Substance: DIPYRIDAMOLE
     Dosage: 25 MG, QD
     Route: 048
     Dates: start: 20150715
  53. BIOFERMIN                          /01617201/ [Concomitant]
     Active Substance: BACILLUS SUBTILIS\LACTOBACILLUS ACIDOPHILUS\STREPTOCOCCUS FAECAIS
     Dosage: UNK, TID
     Route: 048
     Dates: start: 20150810, end: 20151115
  54. ZOLEDRONIC ACID [Concomitant]
     Active Substance: ZOLEDRONIC ACID
     Indication: PROPHYLAXIS
     Dosage: 4 MG, UNK
     Route: 042
     Dates: start: 20150803, end: 20150803
  55. ZOVIRAX [Concomitant]
     Active Substance: ACYCLOVIR
     Dosage: 200 MG, BID
     Route: 048
     Dates: start: 20150605, end: 20150706
  56. SODIUM CHLORIDE. [Concomitant]
     Active Substance: SODIUM CHLORIDE
     Dosage: 1 G, TID
     Route: 048
     Dates: start: 20151226, end: 20160103
  57. SODIUM CHLORIDE. [Concomitant]
     Active Substance: SODIUM CHLORIDE
     Dosage: 1 G, TID
     Route: 048
     Dates: start: 20150711, end: 20151030
  58. SODIUM CHLORIDE. [Concomitant]
     Active Substance: SODIUM CHLORIDE
     Dosage: 2 G, TID
     Route: 048
     Dates: start: 20150710, end: 20150710
  59. BIOFERMIN                          /01617201/ [Concomitant]
     Active Substance: BACILLUS SUBTILIS\LACTOBACILLUS ACIDOPHILUS\STREPTOCOCCUS FAECAIS
     Indication: DIARRHOEA
     Dosage: UNK, TID
     Route: 048
     Dates: start: 20151117, end: 20151119
  60. POPIYODON [Concomitant]
     Indication: ASPIRATION PLEURAL CAVITY
     Dosage: 15 ML, UNK
     Route: 061
     Dates: start: 20151124, end: 20151203
  61. SOLULACT [Concomitant]
     Indication: TUBERCULOUS PLEURISY
     Dosage: 500 ML, QD
     Route: 042
     Dates: start: 20151115, end: 20151117
  62. SOLDEM [Concomitant]
     Active Substance: DEXTROSE\POTASSIUM CHLORIDE\SODIUM CHLORIDE\SODIUM LACTATE
     Indication: LUNG INFECTION
  63. NOVAMIN                            /00013301/ [Concomitant]
     Active Substance: PROCHLORPERAZINE MALEATE
     Indication: NAUSEA
     Dosage: 5 MG, TID
     Route: 048
     Dates: start: 20150706, end: 20150713
  64. TAKEPRON [Concomitant]
     Active Substance: LANSOPRAZOLE
     Indication: CHRONIC GASTRITIS
     Dosage: 15 MG, QD
     Route: 065
  65. CALONAL [Concomitant]
     Active Substance: ACETAMINOPHEN
     Dosage: 600 MG, UNK
     Route: 048
     Dates: start: 20150707, end: 20151116
  66. ZOVIRAX [Concomitant]
     Active Substance: ACYCLOVIR
     Indication: PROPHYLAXIS
     Dosage: 200 MG, QD
     Route: 048
     Dates: start: 20150707, end: 20160104
  67. TRAMCET [Concomitant]
     Active Substance: ACETAMINOPHEN\TRAMADOL
     Indication: NAUSEA
     Dosage: UNK
     Route: 065
  68. SODIUM CHLORIDE. [Concomitant]
     Active Substance: SODIUM CHLORIDE
     Dosage: 1 G, TID
     Route: 048
     Dates: start: 20150709, end: 20150709
  69. HIRUDOID                           /00723701/ [Concomitant]
     Active Substance: PENTOSAN POLYSULFATE SODIUM
     Indication: ERYTHEMA MULTIFORME
     Dosage: UNK
     Route: 061
     Dates: start: 20150715, end: 20151009
  70. POPIYODON [Concomitant]
     Indication: THORACIC CAVITY DRAINAGE
     Dosage: 15 ML, UNK
     Route: 061
     Dates: start: 20151116, end: 20151116
  71. TRIMETHOPRIM. [Concomitant]
     Active Substance: TRIMETHOPRIM
     Indication: INFECTION PROPHYLAXIS
     Dosage: 80 MG, UNK
     Route: 048
     Dates: start: 20150701, end: 20150809
  72. ACETAMINOPHEN. [Concomitant]
     Active Substance: ACETAMINOPHEN
     Indication: SPINAL COMPRESSION FRACTURE
     Dosage: 325 MG, QID
     Route: 048
     Dates: start: 20150709, end: 20150723
  73. ACETAMINOPHEN. [Concomitant]
     Active Substance: ACETAMINOPHEN
     Dosage: 325 MG, BID
     Route: 048
     Dates: start: 20151115, end: 20151117

REACTIONS (11)
  - Erythema multiforme [Unknown]
  - Lung infection [Not Recovered/Not Resolved]
  - Diarrhoea [Unknown]
  - Catheter site pain [Unknown]
  - Nausea [Unknown]
  - Upper respiratory tract infection [Unknown]
  - Hyponatraemia [Unknown]
  - Decreased appetite [Unknown]
  - Tuberculous pleurisy [Recovering/Resolving]
  - Constipation [Unknown]
  - Insomnia [Unknown]

NARRATIVE: CASE EVENT DATE: 20150704
